FAERS Safety Report 5505609-X (Version None)
Quarter: 2007Q4

REPORT INFORMATION
  Report Type: 
  Country: None (occurrence: None)
  Receive Date: 20071102
  Receipt Date: 20071023
  Transmission Date: 20080405
  Serious: Yes (Other)
  Sender: FDA-Public Use
  Company Number: FR-PFIZER INC-2007083617

PATIENT
  Sex: Male
  Weight: 125 kg

DRUGS (19)
  1. CHAMPIX [Suspect]
     Indication: SMOKING CESSATION THERAPY
  2. LERCAN [Concomitant]
     Indication: HYPERTENSION
     Route: 048
  3. ESCITALOPRAM OXALATE [Concomitant]
     Indication: DEPRESSION
     Route: 048
  4. SYMBICORT TURBOHALER [Concomitant]
     Indication: ASTHMA
     Dosage: TEXT:400 UG-FREQ:2 INTAKES PER DAY
     Route: 055
  5. MONTELUKAST SODIUM [Concomitant]
     Indication: ASTHMA
     Route: 048
  6. BRONCHODUAL [Concomitant]
     Indication: ASTHMA
     Dosage: TEXT:2 INHALATIONS-FREQ:2-4 TIMES PER DAY
     Route: 055
  7. CRESTOR [Concomitant]
     Route: 048
  8. SERETIDE [Concomitant]
     Dosage: FREQ:2 INTAKES PER DAY
     Route: 055
  9. XANAX [Concomitant]
     Dosage: FREQ:2 INTAKES PER DAY
     Route: 048
     Dates: start: 20070328
  10. TRIMEBUTINE MALEATE [Concomitant]
     Dates: start: 20070217
  11. IMPORTAL [Concomitant]
     Dates: start: 20070217
  12. ATACAND [Concomitant]
     Dates: start: 20070328
  13. VASTAREL [Concomitant]
     Dosage: FREQ:3 PER DAY
     Dates: start: 20070328
  14. VENTOLIN [Concomitant]
     Dosage: TEXT:2 PUFFS
     Dates: start: 20070328
  15. INEXIUM [Concomitant]
     Dosage: TEXT:40
     Dates: start: 20070328
  16. XYZAL [Concomitant]
     Dates: start: 20070328
  17. ACETAMINOPHEN [Concomitant]
     Dosage: TEXT:1000-FREQ:3 PER DAY
     Dates: start: 20070328
  18. GAVISCON [Concomitant]
     Dates: start: 20070328
  19. GLYCERIN [Concomitant]
     Route: 054
     Dates: start: 20070328

REACTIONS (3)
  - BALANCE DISORDER [None]
  - COORDINATION ABNORMAL [None]
  - MOVEMENT DISORDER [None]
